FAERS Safety Report 21508316 (Version 3)
Quarter: 2022Q4

REPORT INFORMATION
  Report Type: Report from Study
  Country: GB (occurrence: GB)
  Receive Date: 20221026
  Receipt Date: 20221104
  Transmission Date: 20230113
  Serious: Yes (Death, Hospitalization, Congenital Anomaly, Other)
  Sender: FDA-Public Use
  Company Number: GB-009507513-1806GBR012005

PATIENT
  Age: 16 Week
  Sex: Male

DRUGS (44)
  1. KALETRA [Suspect]
     Active Substance: LOPINAVIR\RITONAVIR
     Indication: Maternal exposure timing unspecified
     Dosage: UNK
     Route: 064
     Dates: start: 20100610
  2. KALETRA [Suspect]
     Active Substance: LOPINAVIR\RITONAVIR
     Indication: Maternal exposure timing unspecified
     Route: 064
  3. FOLIC ACID [Suspect]
     Active Substance: FOLIC ACID
     Indication: Maternal exposure timing unspecified
     Dosage: 1 DOSAGE FORM, QD
  4. FOLIC ACID [Suspect]
     Active Substance: FOLIC ACID
     Indication: Maternal exposure timing unspecified
     Route: 064
  5. LOPINAVIR\RITONAVIR [Suspect]
     Active Substance: LOPINAVIR\RITONAVIR
     Indication: Maternal exposure timing unspecified
     Dosage: UNK
     Route: 064
     Dates: start: 20100610
  6. LOPINAVIR\RITONAVIR [Suspect]
     Active Substance: LOPINAVIR\RITONAVIR
     Indication: Maternal exposure timing unspecified
     Route: 064
  7. LOPINAVIR\RITONAVIR [Suspect]
     Active Substance: LOPINAVIR\RITONAVIR
     Indication: Maternal exposure timing unspecified
     Dosage: UNK
     Route: 064
     Dates: start: 20100610
  8. LAMIVUDINE [Suspect]
     Active Substance: LAMIVUDINE
     Indication: Maternal exposure timing unspecified
     Dosage: 300 MILLIGRAM
     Route: 064
     Dates: start: 20090101, end: 20100610
  9. LAMIVUDINE [Suspect]
     Active Substance: LAMIVUDINE
     Indication: Maternal exposure timing unspecified
     Route: 064
  10. ZIDOVUDINE [Suspect]
     Active Substance: ZIDOVUDINE
     Indication: Maternal exposure timing unspecified
     Dosage: 800 MILLIGRAM, QD
     Route: 064
     Dates: start: 20100610
  11. ZIDOVUDINE [Suspect]
     Active Substance: ZIDOVUDINE
     Indication: Maternal exposure timing unspecified
     Dosage: 600 MILLIGRAM, QD
     Route: 064
     Dates: start: 20090110, end: 20100610
  12. ISENTRESS [Suspect]
     Active Substance: RALTEGRAVIR POTASSIUM
     Indication: Maternal exposure timing unspecified
     Dosage: 3200 MILLIGRAM, QD(800 MILLIGRAM, QID)
     Route: 064
     Dates: start: 20100610
  13. ISENTRESS [Suspect]
     Active Substance: RALTEGRAVIR POTASSIUM
     Indication: Maternal exposure timing unspecified
     Route: 064
  14. RITONAVIR [Suspect]
     Active Substance: RITONAVIR
     Indication: Maternal exposure timing unspecified
     Dosage: UNK
     Route: 064
  15. EFAVIRENZ\EMTRICITABINE\TENOFOVIR DISOPROXIL FUMARATE [Suspect]
     Active Substance: EFAVIRENZ\EMTRICITABINE\TENOFOVIR DISOPROXIL FUMARATE
     Indication: Maternal exposure timing unspecified
     Route: 064
  16. EMTRICITABINE [Suspect]
     Active Substance: EMTRICITABINE
     Indication: Maternal exposure timing unspecified
     Dosage: 1 DOSAGE FORM, QD(1 TABLET/CAPSULE)
     Route: 064
     Dates: start: 20171006
  17. EMTRICITABINE [Suspect]
     Active Substance: EMTRICITABINE
     Indication: Maternal exposure timing unspecified
     Route: 064
  18. EMTRICITABINE [Suspect]
     Active Substance: EMTRICITABINE
     Indication: Maternal exposure timing unspecified
     Dosage: 1 DOSAGE FORM, QD(1 TABLET/CAPSULE)
     Route: 064
     Dates: start: 20180205
  19. EMTRICITABINE [Suspect]
     Active Substance: EMTRICITABINE
     Indication: Maternal exposure timing unspecified
     Dosage: 1 DOSAGE FORM, QD(1 TABLET/CAPSULE)
     Route: 064
     Dates: end: 20180205
  20. COBAMAMIDE [Suspect]
     Active Substance: COBAMAMIDE
     Indication: Maternal exposure timing unspecified
     Dosage: UNK
     Route: 064
  21. COBAMAMIDE [Suspect]
     Active Substance: COBAMAMIDE
     Indication: Maternal exposure timing unspecified
     Route: 064
  22. NEVIRAPINE [Suspect]
     Active Substance: NEVIRAPINE
     Indication: Maternal exposure timing unspecified
     Dosage: 400 MILLIGRAM, QD
     Route: 064
     Dates: start: 20090101, end: 20100610
  23. INSULIN ASPART [Suspect]
     Active Substance: INSULIN ASPART
     Indication: Maternal exposure timing unspecified
     Dosage: 30 VIALS
     Route: 064
  24. EFAVIRENZ [Suspect]
     Active Substance: EFAVIRENZ
     Indication: Maternal exposure timing unspecified
     Dosage: 1 DOSAGE FORM, QD(1 TABLET/CAPSULE, DAILY)
     Dates: start: 20171006
  25. EFAVIRENZ [Suspect]
     Active Substance: EFAVIRENZ
     Indication: Maternal exposure timing unspecified
     Route: 064
  26. LOPINAVIR [Suspect]
     Active Substance: LOPINAVIR
     Indication: Maternal exposure timing unspecified
     Route: 064
     Dates: start: 20100610
  27. TRUVADA [Suspect]
     Active Substance: EMTRICITABINE\TENOFOVIR DISOPROXIL FUMARATE
     Indication: Maternal exposure timing unspecified
     Dosage: 1 DOSAGE FORM, QD (MATERNAL DOSE)
     Route: 064
  28. TRUVADA [Suspect]
     Active Substance: EMTRICITABINE\TENOFOVIR DISOPROXIL FUMARATE
     Indication: Maternal exposure timing unspecified
     Route: 064
  29. TRUVADA [Suspect]
     Active Substance: EMTRICITABINE\TENOFOVIR DISOPROXIL FUMARATE
     Indication: Maternal exposure timing unspecified
     Dosage: 1 DOSAGE FORM, QD(MATERNAL DOSE: 1 UG/LITRE, QD (1 TABLET/CAPSULE))
     Route: 064
     Dates: start: 20180205
  30. TRUVADA [Suspect]
     Active Substance: EMTRICITABINE\TENOFOVIR DISOPROXIL FUMARATE
     Indication: Maternal exposure timing unspecified
     Dosage: 1 DOSAGE FORM, QD (MATERNAL DOSE)
     Route: 064
     Dates: start: 20171006, end: 20180205
  31. LABETALOL [Suspect]
     Active Substance: LABETALOL\LABETALOL HYDROCHLORIDE
     Indication: Maternal exposure timing unspecified
     Dosage: UNK
     Route: 064
  32. LABETALOL [Suspect]
     Active Substance: LABETALOL\LABETALOL HYDROCHLORIDE
     Indication: Maternal exposure timing unspecified
     Route: 064
  33. VITAMIN B12 [Suspect]
     Active Substance: CYANOCOBALAMIN
     Indication: Maternal exposure timing unspecified
     Dosage: UNK (CYANOCOBALAMINE)
     Route: 064
     Dates: start: 20100610
  34. VITAMIN B12 [Suspect]
     Active Substance: CYANOCOBALAMIN
     Indication: Maternal exposure timing unspecified
     Route: 064
  35. VITAMIN B12 [Suspect]
     Active Substance: CYANOCOBALAMIN
     Indication: Maternal exposure timing unspecified
     Dosage: UNK
     Route: 064
     Dates: start: 20100610
  36. METFORMIN [Suspect]
     Active Substance: METFORMIN HYDROCHLORIDE
     Indication: Maternal exposure timing unspecified
     Route: 064
  37. EMTRICITABINE\TENOFOVIR [Suspect]
     Active Substance: EMTRICITABINE\TENOFOVIR
     Indication: Maternal exposure timing unspecified
     Dosage: 1 DOSAGE FORM, QD
     Route: 064
     Dates: start: 20180205
  38. EMTRICITABINE\TENOFOVIR [Suspect]
     Active Substance: EMTRICITABINE\TENOFOVIR
     Indication: Maternal exposure timing unspecified
     Dosage: 1 DOSAGE FORM, QD
     Route: 064
     Dates: start: 20171006, end: 20180205
  39. EFAVIRENZ [Suspect]
     Active Substance: EFAVIRENZ
     Indication: Maternal exposure timing unspecified
     Route: 064
  40. TENOFOVIR [Suspect]
     Active Substance: TENOFOVIR
     Indication: Maternal exposure timing unspecified
     Dosage: 300 MILLIGRAM, QD
     Route: 064
     Dates: start: 20100610
  41. TENOFOVIR [Suspect]
     Active Substance: TENOFOVIR
     Indication: Maternal exposure timing unspecified
     Route: 064
  42. TENOFOVIR [Suspect]
     Active Substance: TENOFOVIR
     Indication: Maternal exposure timing unspecified
     Dosage: 1 DOSAGE FORM, QD
     Route: 048
     Dates: start: 20180205
  43. TENOFOVIR [Suspect]
     Active Substance: TENOFOVIR
     Indication: Maternal exposure timing unspecified
     Dosage: 1 DOSAGE FORM, QD (1 TABLET/CAPSULE)
     Route: 064
     Dates: start: 20171006, end: 20180205
  44. TENOFOVIR [Suspect]
     Active Substance: TENOFOVIR
     Indication: Maternal exposure timing unspecified
     Dosage: 1 DOSAGE FORM, QD (1 TABLET/CAPSULE)
     Route: 064
     Dates: start: 20180205

REACTIONS (5)
  - Hydrops foetalis [Fatal]
  - Trisomy 18 [Fatal]
  - Foetal exposure during pregnancy [Unknown]
  - Ultrasound antenatal screen [Fatal]
  - Cleft lip and palate [Fatal]

NARRATIVE: CASE EVENT DATE: 20171006
